FAERS Safety Report 20977879 (Version 2)
Quarter: 2022Q2

REPORT INFORMATION
  Report Type: Spontaneous
  Country: FR (occurrence: FR)
  Receive Date: 20220618
  Receipt Date: 20220623
  Transmission Date: 20220721
  Serious: Yes (Hospitalization)
  Sender: FDA-Public Use
  Company Number: None

PATIENT
  Age: 47 Year
  Sex: Male

DRUGS (11)
  1. CLOZAPINE [Suspect]
     Active Substance: CLOZAPINE
     Indication: Schizophrenia
     Dosage: 100 MG/J
     Route: 048
     Dates: start: 20220208, end: 20220209
  2. OLANZAPINE [Suspect]
     Active Substance: OLANZAPINE
     Indication: Schizophrenia
     Dosage: 30 MG/J
     Route: 048
     Dates: start: 20220104, end: 20220107
  3. DIAZEPAM [Suspect]
     Active Substance: DIAZEPAM
     Indication: Schizophrenia
     Dosage: 120 DROPS PER DAY
     Route: 048
     Dates: start: 20220216
  4. ATROPINE [Suspect]
     Active Substance: ATROPINE
     Indication: Salivary hypersecretion
     Dosage: 2 DROPS PER DAY
     Route: 048
     Dates: start: 20220221
  5. CHLORPROMAZINE [Suspect]
     Active Substance: CHLORPROMAZINE
     Indication: Schizophrenia
     Dosage: 650 MG/J
     Route: 048
     Dates: start: 20220114
  6. LITHIUM [Suspect]
     Active Substance: LITHIUM
     Indication: Schizophrenia
     Dosage: 600 MG/J
     Route: 048
     Dates: start: 20220118, end: 20220130
  7. LOXAPINE [Suspect]
     Active Substance: LOXAPINE
     Indication: Schizophrenia
     Dosage: 600MG PER DAY
     Route: 048
     Dates: start: 20220104, end: 20220114
  8. HALOPERIDOL [Suspect]
     Active Substance: HALOPERIDOL
     Indication: Schizophrenia
     Dosage: 20 MG/J
     Route: 048
     Dates: start: 20220114, end: 20220119
  9. VALPROATE SODIUM [Suspect]
     Active Substance: VALPROATE SODIUM
     Indication: Schizophrenia
     Dosage: 2000 MG/J
     Route: 048
     Dates: start: 20220104, end: 20220131
  10. LOVENOX [Concomitant]
     Active Substance: ENOXAPARIN SODIUM
     Indication: Product used for unknown indication
     Dosage: STRENGTH: 4000 ANTI-XA IU/0.4 ML,2 SACHETS PER DAY
     Route: 048
     Dates: start: 20220104
  11. POLYETHYLENE GLYCOLS [Concomitant]
     Active Substance: POLYETHYLENE GLYCOLS
     Indication: Constipation
     Dosage: 2 SACHETS PER DAY
     Route: 048
     Dates: start: 20220104

REACTIONS (4)
  - Faecaloma [Recovering/Resolving]
  - Peritonitis [Recovering/Resolving]
  - Intestinal obstruction [Recovering/Resolving]
  - Off label use [Unknown]

NARRATIVE: CASE EVENT DATE: 20220201
